FAERS Safety Report 5518430-3 (Version None)
Quarter: 2007Q4

REPORT INFORMATION
  Report Type: 
  Country: None (occurrence: None)
  Receive Date: 20071115
  Receipt Date: 20071108
  Transmission Date: 20080405
  Serious: Yes (Hospitalization, Other)
  Sender: FDA-Public Use
  Company Number: PHMT2006CA00944

PATIENT
  Sex: Male

DRUGS (3)
  1. SANDOSTATIN LAR [Suspect]
     Indication: CARCINOID TUMOUR
     Dosage: 20MG EVERY 4 WEEKS
     Dates: start: 20051229, end: 20060322
  2. SANDOSTATIN LAR [Suspect]
     Dosage: 30MG EVERY 4 WEEKS
     Dates: start: 20060323
  3. INSULIN [Concomitant]

REACTIONS (10)
  - ANXIETY [None]
  - ASTHENIA [None]
  - COSTOVERTEBRAL ANGLE TENDERNESS [None]
  - DIARRHOEA [None]
  - HEPATIC EMBOLISATION [None]
  - INFLUENZA [None]
  - INJECTION SITE DISCOMFORT [None]
  - JAUNDICE [None]
  - MALIGNANT NEOPLASM PROGRESSION [None]
  - PYREXIA [None]
